FAERS Safety Report 7008078-6 (Version None)
Quarter: 2010Q3

REPORT INFORMATION
  Report Type: 
  Country: None (occurrence: None)
  Receive Date: 20100922
  Receipt Date: 20100914
  Transmission Date: 20110219
  Serious: Yes (Other)
  Sender: FDA-Public Use
  Company Number: GXBR2010US01578

PATIENT
  Sex: Male
  Weight: 83.9 kg

DRUGS (3)
  1. ENOXAPARIN SODIUM (NGX) [Suspect]
     Indication: THROMBOSIS
     Dosage: 100 MG, BID
     Dates: start: 20100823, end: 20100826
  2. COUMADIN [Suspect]
     Indication: THROMBOSIS
     Dosage: UNK
     Dates: start: 20100801
  3. ASPIRIN [Suspect]
     Indication: THROMBOSIS
     Dosage: UNK
     Dates: start: 20100801

REACTIONS (1)
  - DEAFNESS UNILATERAL [None]
